FAERS Safety Report 9280464 (Version 1)
Quarter: 2013Q2

REPORT INFORMATION
  Report Type: Spontaneous
  Country: US (occurrence: None)
  Receive Date: 20130507
  Receipt Date: 20130507
  Transmission Date: 20140414
  Serious: Yes (Life-Threatening)
  Sender: FDA-Public Use
  Company Number: None

PATIENT
  Age: 60 Year
  Sex: Male
  Weight: 90.72 kg

DRUGS (3)
  1. REQUIP XL [Suspect]
     Indication: MUSCLE SPASMS
     Dosage: 1 DAY
     Dates: start: 20110404
  2. REQUIP XL [Suspect]
     Dosage: 1 DAY
     Dates: start: 20110404
  3. AZILECT [Concomitant]

REACTIONS (2)
  - Impulsive behaviour [None]
  - Gambling [None]
